FAERS Safety Report 4376786-1 (Version None)
Quarter: 2004Q2

REPORT INFORMATION
  Report Type: 
  Country: None (occurrence: None)
  Receive Date: 20040608
  Receipt Date: 20040525
  Transmission Date: 20050107
  Serious: Yes (Hospitalization)
  Sender: FDA-Public Use
  Company Number: 02100-USA-04-0231

PATIENT
  Age: 38 Year
  Sex: Male

DRUGS (4)
  1. PLETAL [Suspect]
     Indication: STENT OCCLUSION
     Dosage: 100 MG BID ORAL
     Route: 048
     Dates: start: 20021209, end: 20021216
  2. PLETAL [Suspect]
     Indication: THROMBOSIS PROPHYLAXIS
     Dosage: 100 MG BID ORAL
     Route: 048
     Dates: start: 20021209, end: 20021216
  3. ASPIRIN [Suspect]
     Indication: THROMBOSIS PROPHYLAXIS
     Dosage: 200 MG QD ORAL
     Route: 048
     Dates: start: 20021208, end: 20021216
  4. TENORMIN [Concomitant]

REACTIONS (4)
  - MEDICAL DEVICE COMPLICATION [None]
  - POST PROCEDURAL COMPLICATION [None]
  - STENT OCCLUSION [None]
  - THROMBOSIS [None]
